FAERS Safety Report 6619820-8 (Version None)
Quarter: 2010Q1

REPORT INFORMATION
  Report Type: 
  Country: None (occurrence: None)
  Receive Date: 20100309
  Receipt Date: 20100309
  Transmission Date: 20100710
  Serious: Yes (Hospitalization)
  Sender: FDA-Public Use
  Company Number: PHHO2006DE04178

PATIENT
  Sex: Female
  Weight: 66.4 kg

DRUGS (6)
  1. ACLASTA/ZOLEDRONATE T29581+A+SOLINJ [Suspect]
     Indication: OSTEOPOROSIS POSTMENOPAUSAL
     Dosage: 5 MG ONCE A YEAR
     Route: 042
     Dates: start: 20060309
  2. VITAMIN D [Concomitant]
     Indication: OSTEOPOROSIS POSTMENOPAUSAL
  3. CALCIUM [Concomitant]
     Indication: OSTEOPOROSIS POSTMENOPAUSAL
  4. BERLTHYROX [Concomitant]
  5. METOHEXAL [Concomitant]
  6. TELMISARTAN [Concomitant]

REACTIONS (4)
  - MEDICAL DEVICE REMOVAL [None]
  - OPEN REDUCTION OF FRACTURE [None]
  - POST PROCEDURAL HAEMATOMA [None]
  - RADIUS FRACTURE [None]
